FAERS Safety Report 10641178 (Version 1)
Quarter: 2014Q4

REPORT INFORMATION
  Report Type: Spontaneous
  Country: US (occurrence: None)
  Receive Date: 20141208
  Receipt Date: 20141208
  Transmission Date: 20150529
  Serious: Yes (Hospitalization)
  Sender: FDA-Public Use
  Company Number: 2014SA156355

PATIENT
  Age: 67 Year
  Sex: Male

DRUGS (24)
  1. PROGRAF [Concomitant]
     Active Substance: TACROLIMUS\TACROLIMUS ANHYDROUS
  2. CLONIDINE HYDROCHLORIDE. [Concomitant]
     Active Substance: CLONIDINE HYDROCHLORIDE
  3. PEPCID [Concomitant]
     Active Substance: FAMOTIDINE
  4. PRIVIGEN [Concomitant]
     Active Substance: HUMAN IMMUNOGLOBULIN G
  5. VITAMIN D3 [Concomitant]
     Active Substance: CHOLECALCIFEROL
  6. INSULIN DETEMIR [Concomitant]
     Active Substance: INSULIN DETEMIR
  7. HEPARIN [Concomitant]
     Active Substance: HEPARIN SODIUM
  8. ACE INHIBITOR NOS [Concomitant]
     Active Substance: UNSPECIFIED INGREDIENT
  9. FISH 0IL [Concomitant]
  10. GLUCOSE [Concomitant]
     Active Substance: DEXTROSE
  11. DELTASONE [Concomitant]
     Active Substance: PREDNISONE
  12. THYMOGLOBULIN [Suspect]
     Active Substance: LAPINE T-LYMPHOCYTE IMMUNE GLOBULIN
     Indication: RENAL TRANSPLANT
     Route: 042
     Dates: start: 20141023, end: 20141027
  13. AMBIEN [Concomitant]
     Active Substance: ZOLPIDEM TARTRATE
  14. CARDIZEM CD [Concomitant]
     Active Substance: DILTIAZEM HYDROCHLORIDE
  15. INSULIN ASPART [Concomitant]
     Active Substance: INSULIN ASPART
  16. BACTRIM [Concomitant]
     Active Substance: SULFAMETHOXAZOLE\TRIMETHOPRIM
  17. PRAVACHOL [Concomitant]
     Active Substance: PRAVASTATIN SODIUM
  18. NEURONTIN [Concomitant]
     Active Substance: GABAPENTIN
  19. NSAID^S [Concomitant]
     Active Substance: UNSPECIFIED INGREDIENT
  20. PERCOCET [Concomitant]
     Active Substance: ACETAMINOPHEN\OXYCODONE HYDROCHLORIDE
  21. ASPIRIN. [Concomitant]
     Active Substance: ASPIRIN
  22. AZATHIOPRINE. [Concomitant]
     Active Substance: AZATHIOPRINE
  23. LASIX [Concomitant]
     Active Substance: FUROSEMIDE
  24. CELLCEPT [Concomitant]
     Active Substance: MYCOPHENOLATE MOFETIL\MYCOPHENOLATE MOFETIL HYDROCHLORIDE

REACTIONS (5)
  - Rheumatoid arthritis [None]
  - Serum sickness [None]
  - Glomerular filtration rate decreased [None]
  - Blood urea increased [None]
  - Blood creatinine increased [None]

NARRATIVE: CASE EVENT DATE: 20141103
